FAERS Safety Report 10242131 (Version 1)
Quarter: 2014Q1

REPORT INFORMATION
  Report Type: Spontaneous
  Country: US (occurrence: None)
  Receive Date: 20140306
  Receipt Date: 20140306
  Transmission Date: 20141002
  Serious: Yes (Other)
  Sender: FDA-Public Use
  Company Number: 163-21880-13051910

PATIENT
  Age: 78 Year
  Sex: Female

DRUGS (8)
  1. REVLIMID (LENALIDOMIDE) (CAPSULES) [Suspect]
     Indication: PLASMA CELL MYELOMA
     Dosage: 10 MG, 21 IN 28 D, PO
     Route: 048
     Dates: start: 20120109, end: 20130505
  2. FLUVIRIN (INFLUENZA VIRUS VACCINE POLYVALENT) [Concomitant]
  3. MULTI-VIT [Concomitant]
  4. MORPHINE (MORPHINE) [Concomitant]
  5. DEXAMETHASONE (DEXAMETHASONE) [Concomitant]
  6. ALKERAN (MELPHALAN) (MELPHALAN) [Concomitant]
  7. ACYCLOVIR (ACICLOVIR) (ACICLOVIR) [Concomitant]
  8. HYDROCODONE/APAP (VICODIN) [Concomitant]

REACTIONS (1)
  - No therapeutic response [None]
